FAERS Safety Report 8980149 (Version 1)
Quarter: 2012Q4

REPORT INFORMATION
  Report Type: 
  Country: ES (occurrence: ES)
  Receive Date: 20121221
  Receipt Date: 20121221
  Transmission Date: 20130627
  Serious: Yes (Life-Threatening, Hospitalization)
  Sender: FDA-Public Use
  Company Number: GXKR2010ES06553

PATIENT
  Age: 2 Month
  Sex: Female
  Weight: 4.7 kg

DRUGS (7)
  1. PARACETAMOL [Suspect]
     Indication: PYREXIA
     Dosage: 500 mg, Q6H
     Route: 065
  2. GLUCOSE [Suspect]
     Indication: TOXICITY TO VARIOUS AGENTS
     Dosage: 40 to 200 ml over 15 min
  3. GLUCOSE [Suspect]
     Dosage: 500 ml over 4 hours
  4. GLUCOSE [Suspect]
     Dosage: 1000 ml over 16 hours
  5. ACETADOTE [Suspect]
     Indication: ANALGESIC DRUG LEVEL INCREASED
     Dosage: 150 mg/kg over 15 min
  6. ACETADOTE [Suspect]
     Dosage: 50 mg/kg over 4 hours
  7. ACETADOTE [Suspect]
     Dosage: 100 mg/kg over 16 hours

REACTIONS (5)
  - Hyponatraemia [Recovered/Resolved]
  - Grand mal convulsion [Recovered/Resolved]
  - Depressed level of consciousness [Recovered/Resolved]
  - Hepatic encephalopathy [Recovered/Resolved]
  - Accidental overdose [Recovered/Resolved]
